FAERS Safety Report 5958530-7 (Version None)
Quarter: 2008Q4

REPORT INFORMATION
  Report Type: 
  Country: None (occurrence: None)
  Receive Date: 20081119
  Receipt Date: 20081117
  Transmission Date: 20090506
  Serious: Yes (Life-Threatening)
  Sender: FDA-Public Use
  Company Number: PHHY2008GB28507

PATIENT
  Age: 55 Year
  Sex: Male

DRUGS (6)
  1. BACLOFEN [Suspect]
     Indication: MUSCLE SPASTICITY
     Dosage: 10 MG, TID
     Route: 048
     Dates: start: 20080703, end: 20081001
  2. AMLODIPINE [Concomitant]
     Indication: HYPERTENSION
     Dosage: 5 MG, QD
  3. ATENOLOL [Concomitant]
     Indication: HYPERTENSION
     Dosage: 100 MG, QD
     Route: 048
  4. CITALOPRAM HYDROBROMIDE [Concomitant]
     Indication: DEPRESSION
     Dosage: 40 MG, UNK
     Route: 048
  5. ACETAMINOPHEN W/ CODEINE [Concomitant]
     Indication: PAIN
  6. OMEPRAZOLE [Concomitant]
     Indication: DYSPEPSIA
     Dosage: 20 MG, QD

REACTIONS (2)
  - HAEMOGLOBIN DECREASED [None]
  - MELAENA [None]
